FAERS Safety Report 19429170 (Version 1)
Quarter: 2021Q2

REPORT INFORMATION
  Report Type: Spontaneous
  Country: US (occurrence: US)
  Receive Date: 20210617
  Receipt Date: 20210617
  Transmission Date: 20210717
  Serious: Yes (Death, Hospitalization)
  Sender: FDA-Public Use
  Company Number: None

PATIENT
  Age: 55 Year
  Sex: Female
  Weight: 157.5 kg

DRUGS (3)
  1. CLOZAPINE. [Suspect]
     Active Substance: CLOZAPINE
     Indication: SCHIZOPHRENIA
     Dates: start: 20201215
  2. METFORMIN [Concomitant]
     Active Substance: METFORMIN HYDROCHLORIDE
  3. ABILIFY [Concomitant]
     Active Substance: ARIPIPRAZOLE

REACTIONS (9)
  - Lethargy [None]
  - White blood cell count decreased [None]
  - Myocarditis [None]
  - Pyrexia [None]
  - Hypophagia [None]
  - Blood pressure decreased [None]
  - Hypersomnia [None]
  - Organ failure [None]
  - Speech disorder [None]

NARRATIVE: CASE EVENT DATE: 20201220
